FAERS Safety Report 8291825 (Version 2)
Quarter: 2012Q4

REPORT INFORMATION
  Report Type: Report from Study
  Country: FR (occurrence: FR)
  Receive Date: 20111214
  Receipt Date: 20121008
  Transmission Date: 20130627
  Serious: Yes (Death, Hospitalization)
  Sender: FDA-Public Use
  Company Number: FR-ROCHE-785221

PATIENT
  Age: 67 Year
  Sex: Male

DRUGS (12)
  1. MABTHERA [Suspect]
     Indication: LYMPHOMA
     Route: 065
  2. MABTHERA [Suspect]
     Route: 065
  3. MABTHERA [Suspect]
     Route: 065
  4. MABTHERA [Suspect]
     Route: 065
  5. MABTHERA [Suspect]
     Route: 065
  6. MABTHERA [Suspect]
     Route: 065
  7. CYCLOPHOSPHAMIDE [Suspect]
     Indication: LYMPHOMA
     Route: 065
  8. CYCLOPHOSPHAMIDE/CYCLOPHOSPHAMIDE [Suspect]
     Route: 065
  9. CYCLOPHOSPHAMIDE [Suspect]
     Route: 065
  10. CYCLOPHOSPHAMIDE [Suspect]
     Route: 065
  11. FLUDARABINE PHOSPHATE [Suspect]
     Indication: LYMPHOMA
     Route: 065
  12. FLUDARABINE PHOSPHATE [Suspect]
     Route: 048

REACTIONS (6)
  - Lung infection [Recovered/Resolved]
  - Anaemia [Unknown]
  - Thrombocytopenia [Unknown]
  - Bacteraemia [Unknown]
  - Neutropenia [Unknown]
  - Acute myeloid leukaemia [Fatal]
